FAERS Safety Report 7739498-X (Version None)
Quarter: 2011Q3

REPORT INFORMATION
  Report Type: 
  Country: None (occurrence: None)
  Receive Date: 20110909
  Receipt Date: 20110905
  Transmission Date: 20111222
  Serious: Yes (Other)
  Sender: FDA-Public Use
  Company Number: DE-SANOFI-AVENTIS-2011SA052570

PATIENT
  Age: 70 Year
  Sex: Male
  Weight: 91.1 kg

DRUGS (10)
  1. UBRETID [Concomitant]
     Route: 048
  2. SIMVASTATIN [Concomitant]
     Route: 048
  3. MULTAQ [Suspect]
     Indication: ATRIAL FIBRILLATION
     Route: 048
     Dates: start: 20110803, end: 20110816
  4. PANTOPRAZOLE [Concomitant]
     Route: 048
  5. TORSEMIDE [Concomitant]
     Route: 048
     Dates: end: 20110801
  6. METOPROLOL TARTRATE [Concomitant]
     Dosage: 1-0-0.5 DAILY
     Route: 048
  7. ENOXAPARIN SODIUM [Concomitant]
     Route: 058
  8. SERTRALINE HYDROCHLORIDE [Concomitant]
     Route: 048
  9. CANDESARTAN CILEXETIL/HYDROCHLOROTHIAZIDE [Concomitant]
     Dosage: CANDESARTAN CILEXETIL/HYDROCHLOROTHIAZIDE 16 MG/12.5 MG; 1-0-0.5 DAILY
     Route: 048
  10. AMLODIPINE [Concomitant]
     Route: 048

REACTIONS (3)
  - RENAL FAILURE ACUTE [None]
  - ARRHYTHMIA [None]
  - BLOOD CREATININE INCREASED [None]
